FAERS Safety Report 7224770-2 (Version None)
Quarter: 2011Q1

REPORT INFORMATION
  Report Type: 
  Country: None (occurrence: None)
  Receive Date: 20110113
  Receipt Date: 20110106
  Transmission Date: 20110831
  Serious: Yes (Hospitalization, Other)
  Sender: FDA-Public Use
  Company Number: US-JNJFOC-20110101849

PATIENT
  Sex: Female

DRUGS (7)
  1. ENALAPRIL [Concomitant]
     Indication: HYPERTENSION
     Route: 065
  2. TEGRETOL [Suspect]
     Indication: ILL-DEFINED DISORDER
     Route: 065
  3. TOPROL-XL [Suspect]
     Route: 048
  4. TOPAMAX [Suspect]
     Indication: CONVULSION
     Route: 048
  5. LASIX [Concomitant]
     Indication: PERICARDIAL EFFUSION
     Route: 065
  6. TOPROL-XL [Suspect]
     Indication: ILL-DEFINED DISORDER
     Route: 048
  7. REGLAN [Concomitant]
     Indication: GASTROOESOPHAGEAL REFLUX DISEASE
     Route: 065

REACTIONS (9)
  - DYSPNOEA [None]
  - PHARYNGITIS STREPTOCOCCAL [None]
  - WRONG DRUG ADMINISTERED [None]
  - RASH [None]
  - BLOOD PRESSURE DECREASED [None]
  - PYREXIA [None]
  - DRUG DISPENSING ERROR [None]
  - PRODUCT QUALITY ISSUE [None]
  - GRAND MAL CONVULSION [None]
